FAERS Safety Report 5327909-9 (Version None)
Quarter: 2007Q2

REPORT INFORMATION
  Report Type: 
  Country: None (occurrence: None)
  Receive Date: 20070517
  Receipt Date: 20070508
  Transmission Date: 20071010
  Serious: Yes (Other)
  Sender: FDA-Public Use
  Company Number: GB-PFIZER INC-2007038043

PATIENT
  Sex: Male

DRUGS (4)
  1. LYRICA [Suspect]
     Indication: DEPRESSION
     Route: 048
  2. LYRICA [Suspect]
     Indication: COLD EXPOSURE INJURY
  3. AMITRIPTYLINE HCL [Concomitant]
  4. GABAPENTIN [Concomitant]

REACTIONS (5)
  - COUGH [None]
  - DIZZINESS [None]
  - FLUID RETENTION [None]
  - SENSITIVITY OF TEETH [None]
  - TONGUE DISORDER [None]
